FAERS Safety Report 18456721 (Version 1)
Quarter: 2020Q4

REPORT INFORMATION
  Report Type: Spontaneous
  Country: US (occurrence: US)
  Receive Date: 20201103
  Receipt Date: 20201103
  Transmission Date: 20210114
  Serious: No
  Sender: FDA-Public Use
  Company Number: US-GALDERMA-US2020010148

PATIENT
  Age: 64 Year
  Sex: Female

DRUGS (1)
  1. METROCREAM [Suspect]
     Active Substance: METRONIDAZOLE
     Indication: ROSACEA
     Dosage: 0.75%
     Route: 061

REACTIONS (7)
  - Intentional product misuse [Recovered/Resolved]
  - Intentional underdose [Recovered/Resolved]
  - Acne [Unknown]
  - Expired product administered [Recovered/Resolved]
  - Drug ineffective [Unknown]
  - Erythema [Unknown]
  - Rosacea [Unknown]

NARRATIVE: CASE EVENT DATE: 20200220
